FAERS Safety Report 5846452-1 (Version None)
Quarter: 2008Q3

REPORT INFORMATION
  Report Type: 
  Country: None (occurrence: None)
  Receive Date: 20080815
  Receipt Date: 20080801
  Transmission Date: 20090109
  Serious: Yes (Death)
  Sender: FDA-Public Use
  Company Number: US-NOVOPROD-278048

PATIENT
  Age: 60 Year
  Sex: Male

DRUGS (3)
  1. NOVOLOG [Suspect]
     Indication: DIABETES MELLITUS
     Dosage: 8 - 12 IU, QD
     Route: 058
     Dates: start: 20070430
  2. LEVEMIR [Suspect]
     Indication: DIABETES MELLITUS
     Dosage: 18-24 IU, QD
     Route: 058
     Dates: start: 20070430
  3. METFORMIN HCL [Concomitant]
     Indication: DIABETES MELLITUS
     Dosage: UNKNOWN

REACTIONS (1)
  - COMA [None]
